FAERS Safety Report 9986399 (Version 1)
Quarter: 2014Q1

REPORT INFORMATION
  Report Type: Report from Study
  Country: US (occurrence: US)
  Receive Date: 20140307
  Receipt Date: 20140307
  Transmission Date: 20141002
  Serious: No
  Sender: FDA-Public Use
  Company Number: US-ABBVIE-13P-163-1088942-00

PATIENT
  Age: 20 Year
  Sex: Female

DRUGS (4)
  1. HUMIRA [Suspect]
     Indication: COLITIS ULCERATIVE
     Dates: start: 20130306
  2. TRAMADOL [Concomitant]
     Indication: PAIN
     Dosage: 50 MG DAILY
  3. TRAMADOL [Concomitant]
     Indication: OSTEONECROSIS
  4. PHENERGAN [Concomitant]
     Indication: COLITIS ULCERATIVE

REACTIONS (4)
  - Device malfunction [Unknown]
  - Vomiting [Unknown]
  - Vomiting [Unknown]
  - Inappropriate schedule of drug administration [Not Recovered/Not Resolved]
